FAERS Safety Report 17445483 (Version 28)
Quarter: 2023Q2

REPORT INFORMATION
  Report Type: Report from Study
  Country: US (occurrence: US)
  Receive Date: 20200221
  Receipt Date: 20230607
  Transmission Date: 20230722
  Serious: Yes (Hospitalization, Other)
  Sender: FDA-Public Use
  Company Number: NVSC2020US048243

PATIENT
  Age: 40 Year
  Sex: Male
  Weight: 80.74 kg

DRUGS (20)
  1. TREPROSTINIL [Suspect]
     Active Substance: TREPROSTINIL
     Indication: Pulmonary arterial hypertension
     Dosage: UNK (27 NG/KG/MIN CONTINUOUS) (STRENGTH: 2.5 MG/ML)
     Route: 042
     Dates: start: 20200213
  2. TREPROSTINIL [Suspect]
     Active Substance: TREPROSTINIL
     Dosage: UNK, CONT (40 NG/KG/MIN) CONT (STRENGTH: 1 MG/ML)
     Route: 042
  3. TREPROSTINIL [Suspect]
     Active Substance: TREPROSTINIL
     Dosage: UNK (23 NG/KG/MIN CONTINUOUS)
     Route: 042
  4. TREPROSTINIL [Suspect]
     Active Substance: TREPROSTINIL
     Dosage: UNK (30 NG/KG/MIN CONTINUOUS)
     Route: 042
  5. TREPROSTINIL [Suspect]
     Active Substance: TREPROSTINIL
     Dosage: UNK, 30 NG/KG/MIN CONT
     Route: 042
  6. TREPROSTINIL [Suspect]
     Active Substance: TREPROSTINIL
     Dosage: UNK (30 NG/KG/MIN CONTINUOUS)
     Route: 042
     Dates: end: 20210506
  7. TREPROSTINIL [Suspect]
     Active Substance: TREPROSTINIL
     Dosage: UNK, (30 NG/KG/MIN) CONT
     Route: 042
  8. TREPROSTINIL [Suspect]
     Active Substance: TREPROSTINIL
     Dosage: UNK (30 NG/KG/MIN) CONT
     Route: 065
  9. TREPROSTINIL [Suspect]
     Active Substance: TREPROSTINIL
     Dosage: UNK (27 NG/KG/MIN) (CONCENTRATION 1MG/ML) (CONTINUE)
     Route: 042
  10. TREPROSTINIL [Suspect]
     Active Substance: TREPROSTINIL
     Dosage: UNK (31.5 NG/KG/MIN) (CONCENTRATION 2.5 MG/ML) CONT
     Route: 042
  11. TREPROSTINIL [Suspect]
     Active Substance: TREPROSTINIL
     Dosage: UNK (34 NG/KG/MIN CONTINUOUS)
     Route: 042
  12. TREPROSTINIL [Suspect]
     Active Substance: TREPROSTINIL
     Dosage: UNK (36 NG/KG/MIN) CONT
     Route: 042
  13. TREPROSTINIL [Suspect]
     Active Substance: TREPROSTINIL
     Dosage: UNK (40 NG/KG/MIN) CONT (STRENGTH: 1 MG/ML)
     Route: 042
  14. TREPROSTINIL [Suspect]
     Active Substance: TREPROSTINIL
     Dosage: UNK (40 NG/KG/MIN) CONT (STRENGTH: 1 MG/ML)
     Route: 042
  15. LETAIRIS [Concomitant]
     Active Substance: AMBRISENTAN
     Indication: Product used for unknown indication
     Dosage: UNK
     Route: 065
  16. COUMADIN [Concomitant]
     Active Substance: WARFARIN SODIUM
     Indication: Product used for unknown indication
     Dosage: UNK
     Route: 065
  17. TADALAFIL [Concomitant]
     Active Substance: TADALAFIL
     Indication: Product used for unknown indication
     Dosage: UNK
     Route: 065
  18. AMBRISENTAN [Concomitant]
     Active Substance: AMBRISENTAN
     Indication: Product used for unknown indication
     Dosage: UNK
     Route: 065
  19. WARFARIN [Concomitant]
     Active Substance: WARFARIN
     Indication: Product used for unknown indication
     Dosage: UNK
     Route: 065
  20. VALERIAN [Concomitant]
     Active Substance: VALERIAN
     Indication: Sleep disorder
     Dosage: UNK
     Route: 065

REACTIONS (22)
  - Pneumonia [Unknown]
  - Hypoxia [Unknown]
  - Embolism arterial [Unknown]
  - Rhinovirus infection [Unknown]
  - Influenza [Unknown]
  - COVID-19 [Unknown]
  - Back pain [Unknown]
  - Palpitations [Unknown]
  - Feeling abnormal [Unknown]
  - Dyspepsia [Unknown]
  - Gastrooesophageal reflux disease [Unknown]
  - Oxygen saturation decreased [Unknown]
  - Chest pain [Unknown]
  - Nausea [Unknown]
  - Headache [Unknown]
  - Erythema [Unknown]
  - Pain in jaw [Unknown]
  - Dizziness [Unknown]
  - Injection site infection [Unknown]
  - Injection site pain [Unknown]
  - Injection site discharge [Unknown]
  - Device issue [Unknown]

NARRATIVE: CASE EVENT DATE: 20211227
